FAERS Safety Report 18628832 (Version 1)
Quarter: 2020Q4

REPORT INFORMATION
  Report Type: Spontaneous
  Country: MY (occurrence: MY)
  Receive Date: 20201217
  Receipt Date: 20201217
  Transmission Date: 20210114
  Serious: Yes (Other)
  Sender: FDA-Public Use
  Company Number: MY-PFIZER INC-2020495449

PATIENT
  Age: 17 Year
  Sex: Male

DRUGS (1)
  1. CEFOBID [Suspect]
     Active Substance: CEFOPERAZONE
     Indication: APPENDICITIS
     Dosage: 2000 MG, 1X/DAY
     Route: 042

REACTIONS (3)
  - Restlessness [Recovered/Resolved]
  - Rash maculo-papular [Recovered/Resolved]
  - Tachypnoea [Recovered/Resolved]
